FAERS Safety Report 8607388-6 (Version None)
Quarter: 2012Q3

REPORT INFORMATION
  Report Type: 
  Country: None (occurrence: None)
  Receive Date: 20120821
  Receipt Date: 20120809
  Transmission Date: 20120928
  Serious: Yes (Hospitalization)
  Sender: FDA-Public Use
  Company Number: US-BAYER-2011-027734

PATIENT
  Age: 37 Year
  Sex: Female
  Weight: 102.4 kg

DRUGS (8)
  1. VALIUM [Concomitant]
     Indication: PAIN
  2. PLAVIX [Concomitant]
     Dosage: UNK
     Dates: start: 20060101, end: 20100101
  3. METFORMIN HCL [Concomitant]
     Indication: POLYCYSTIC OVARIES
  4. INSULIN [Concomitant]
  5. YAZ [Suspect]
     Indication: OVARIAN CYST
     Dosage: UNK
     Route: 048
     Dates: start: 20060101, end: 20060601
  6. YASMIN [Suspect]
  7. DIOVAN [Concomitant]
     Dosage: UNK
     Dates: start: 20060101, end: 20100101
  8. SIMVASTATIN [Concomitant]
     Dosage: UNK
     Dates: start: 20060101, end: 20100101

REACTIONS (2)
  - ARTERIAL THROMBOSIS [None]
  - MYOCARDIAL INFARCTION [None]
